FAERS Safety Report 15339790 (Version 3)
Quarter: 2018Q4

REPORT INFORMATION
  Report Type: Spontaneous
  Country: CA (occurrence: CA)
  Receive Date: 20180831
  Receipt Date: 20181130
  Transmission Date: 20190204
  Serious: Yes (Other)
  Sender: FDA-Public Use
  Company Number: PHHY2018CA080230

PATIENT
  Sex: Male

DRUGS (1)
  1. VALSARTAN SANDOZ [Suspect]
     Active Substance: VALSARTAN
     Indication: BLOOD PRESSURE ABNORMAL
     Dosage: 160 MG, QD
     Route: 065

REACTIONS (6)
  - Anxiety [Unknown]
  - Prostate cancer [Unknown]
  - Organ failure [Unknown]
  - General physical health deterioration [Unknown]
  - Metastasis [Unknown]
  - Depression [Unknown]
